FAERS Safety Report 14128537 (Version 1)
Quarter: 2017Q4

REPORT INFORMATION
  Report Type: Spontaneous
  Country: TR (occurrence: TR)
  Receive Date: 20171026
  Receipt Date: 20171026
  Transmission Date: 20180321
  Serious: Yes (Other)
  Sender: FDA-Public Use
  Company Number: TR-PFIZER INC-2017457550

PATIENT
  Age: 60 Year
  Sex: Female

DRUGS (1)
  1. SUNITINIB MALATE. [Suspect]
     Active Substance: SUNITINIB MALATE
     Indication: RENAL CANCER METASTATIC
     Dosage: 50 MG, CYCLIC (4 WEEKS ON/2 WEEKS OFF)

REACTIONS (2)
  - Neoplasm progression [Unknown]
  - Pulmonary cavitation [Unknown]

NARRATIVE: CASE EVENT DATE: 20120829
